FAERS Safety Report 10225156 (Version 1)
Quarter: 2014Q2

REPORT INFORMATION
  Report Type: Spontaneous
  Country: BR (occurrence: BR)
  Receive Date: 20140609
  Receipt Date: 20140609
  Transmission Date: 20141212
  Serious: Yes (Other)
  Sender: FDA-Public Use
  Company Number: BR-PFIZER INC-2014153802

PATIENT
  Age: 54 Year
  Sex: Female

DRUGS (4)
  1. CITALOR [Suspect]
     Dosage: 20 MG STRENGTH, UNK
     Dates: end: 20140414
  2. ASPIRINA [Concomitant]
     Indication: ANTICOAGULANT THERAPY
     Dosage: 1 DF, DAILY
     Dates: start: 2010
  3. ATENOLOL [Concomitant]
     Indication: BLOOD PRESSURE
     Dosage: 1 DF, DAILY
     Dates: start: 2010
  4. CORUS [Concomitant]
     Indication: BLOOD PRESSURE
     Dosage: 1 DF, DAILY
     Dates: start: 2010

REACTIONS (1)
  - Cardiac disorder [Unknown]
